FAERS Safety Report 18890037 (Version 1)
Quarter: 2021Q1

REPORT INFORMATION
  Report Type: Spontaneous
  Country: US (occurrence: US)
  Receive Date: 20210214
  Receipt Date: 20210214
  Transmission Date: 20210420
  Serious: No
  Sender: FDA-Public Use
  Company Number: US-TEVA-2021-US-1874958

PATIENT
  Age: 80 Year
  Sex: Female

DRUGS (2)
  1. PREDNISONE TEVA [Suspect]
     Active Substance: PREDNISONE
     Route: 065
  2. BENADRYL [Concomitant]
     Active Substance: DIPHENHYDRAMINE HYDROCHLORIDE
     Route: 065

REACTIONS (4)
  - Lip swelling [Unknown]
  - Documented hypersensitivity to administered product [Unknown]
  - Swelling face [Unknown]
  - Throat tightness [Unknown]
